FAERS Safety Report 12231645 (Version 2)
Quarter: 2016Q2

REPORT INFORMATION
  Report Type: Spontaneous
  Country: FR (occurrence: FR)
  Receive Date: 20160401
  Receipt Date: 20160421
  Transmission Date: 20160815
  Serious: Yes (Life-Threatening, Hospitalization)
  Sender: FDA-Public Use
  Company Number: FR-JUBILANT CADISTA PHARMACEUTICALS-2016JUB00115

PATIENT
  Age: 50 Year
  Sex: Female

DRUGS (5)
  1. METHYLPREDNISOLONE. [Suspect]
     Active Substance: METHYLPREDNISOLONE
     Dosage: 1.5 MG, 1X/DAY
     Route: 042
  2. METHYLPREDNISOLONE. [Suspect]
     Active Substance: METHYLPREDNISOLONE
     Indication: RELAPSING-REMITTING MULTIPLE SCLEROSIS
     Dosage: 1.5 TO 2.0 MG DAILY FOR 2 TO 4 DAYS ?DURING AN ACTIVE OUTBREAK?
     Route: 065
  3. METHYLPREDNISOLONE. [Suspect]
     Active Substance: METHYLPREDNISOLONE
     Dosage: 1.5 MG, 1X/DAY
     Route: 042
  4. BROMAZEPAM [Concomitant]
     Active Substance: BROMAZEPAM
     Dosage: 6 MG, IN THE EVENING
     Route: 065
  5. FINGLIMOD [Suspect]
     Active Substance: FINGOLIMOD
     Indication: RELAPSING-REMITTING MULTIPLE SCLEROSIS
     Dosage: 0.5 MG, 1X/DAY
     Route: 048

REACTIONS (6)
  - Intentional overdose [Recovered/Resolved]
  - Major depression [Recovered/Resolved]
  - Suicide attempt [Recovered/Resolved]
  - Tremor [None]
  - Multiple sclerosis relapse [None]
  - Disturbance in attention [None]
